FAERS Safety Report 9871411 (Version 1)
Quarter: 2014Q1

REPORT INFORMATION
  Report Type: Spontaneous
  Country: US (occurrence: None)
  Receive Date: 20140204
  Receipt Date: 20140204
  Transmission Date: 20141002
  Serious: Yes (Other)
  Sender: FDA-Public Use
  Company Number: None

PATIENT
  Age: 32 Year
  Sex: Male
  Weight: 160 kg

DRUGS (1)
  1. HUMIRA [Suspect]
     Route: 058

REACTIONS (1)
  - Vision blurred [None]
